FAERS Safety Report 23228164 (Version 1)
Quarter: 2023Q4

REPORT INFORMATION
  Report Type: Report from Study
  Country: US (occurrence: US)
  Receive Date: 20231125
  Receipt Date: 20231125
  Transmission Date: 20240109
  Serious: No
  Sender: FDA-Public Use
  Company Number: US-002147023-NVSC2023US249173

PATIENT
  Sex: Female

DRUGS (4)
  1. MEKINIST [Suspect]
     Active Substance: TRAMETINIB DIMETHYL SULFOXIDE
     Indication: Product used for unknown indication
     Dosage: 2 MG
     Route: 048
  2. MEKINIST [Suspect]
     Active Substance: TRAMETINIB DIMETHYL SULFOXIDE
     Dosage: 0.5 MG
     Route: 048
  3. TAFINLAR [Suspect]
     Active Substance: DABRAFENIB MESYLATE
     Indication: Product used for unknown indication
     Dosage: 75 MG
     Route: 048
  4. TAFINLAR [Suspect]
     Active Substance: DABRAFENIB MESYLATE
     Dosage: 50 MG
     Route: 048

REACTIONS (1)
  - White blood cell count decreased [Unknown]
